FAERS Safety Report 6974724-6 (Version None)
Quarter: 2010Q3

REPORT INFORMATION
  Report Type: 
  Country: None (occurrence: None)
  Receive Date: 20100909
  Receipt Date: 20090105
  Transmission Date: 20110219
  Serious: Yes (Life-Threatening, Hospitalization, Disabling)
  Sender: FDA-Public Use
  Company Number: US-WYE-H07068908

PATIENT
  Sex: Male
  Weight: 81.27 kg

DRUGS (7)
  1. TORISEL [Suspect]
     Indication: METASTATIC RENAL CELL CARCINOMA
     Route: 042
     Dates: start: 20081007, end: 20081111
  2. VITAMIN B12 [Concomitant]
  3. GLIPIZIDE [Concomitant]
     Indication: DIABETES MELLITUS
  4. JANUVIA [Concomitant]
     Indication: DIABETES MELLITUS
  5. ACTOS [Concomitant]
     Indication: DIABETES MELLITUS
  6. ZOMETA [Concomitant]
     Indication: METASTASES TO BONE
     Dosage: RECEIVED 2 DOSES ONLY
     Dates: start: 20081028, end: 20081101
  7. REGULAR INSULIN [Concomitant]
     Indication: DIABETES MELLITUS

REACTIONS (1)
  - RENAL FAILURE ACUTE [None]
